FAERS Safety Report 4579522-9 (Version None)
Quarter: 2005Q1

REPORT INFORMATION
  Report Type: 
  Country: None (occurrence: None)
  Receive Date: 20050210
  Receipt Date: 20050126
  Transmission Date: 20050727
  Serious: Yes (Death)
  Sender: FDA-Public Use
  Company Number: 2005S1000307

PATIENT
  Age: 49 Year
  Sex: Female

DRUGS (2)
  1. CLOZAPINE [Suspect]
     Dosage: 50 MG HS, ORAL
     Route: 048
     Dates: start: 20040301, end: 20050101
  2. CLOZAPINE [Suspect]
     Dosage: 700 MG HS, ORAL
     Route: 048
     Dates: start: 20040301, end: 20050101

REACTIONS (1)
  - DEATH [None]
